FAERS Safety Report 9931049 (Version 1)
Quarter: 2014Q1

REPORT INFORMATION
  Report Type: Spontaneous
  Country: ES (occurrence: ES)
  Receive Date: 20140227
  Receipt Date: 20140227
  Transmission Date: 20141002
  Serious: Yes (Hospitalization, Other)
  Sender: FDA-Public Use
  Company Number: PHHY2014ES023786

PATIENT
  Age: 11 Year
  Sex: Female

DRUGS (1)
  1. OXCARBAZEPINE [Suspect]
     Indication: COMPLEX PARTIAL SEIZURES
     Dosage: 8 DF, (4800 MG)
     Route: 048

REACTIONS (9)
  - Toxicity to various agents [Recovered/Resolved]
  - Disorientation [Recovered/Resolved]
  - Movement disorder [Recovered/Resolved]
  - Nausea [Recovered/Resolved]
  - Vomiting [Recovered/Resolved]
  - Mydriasis [Recovered/Resolved]
  - Anion gap increased [Recovered/Resolved]
  - Language disorder [Recovered/Resolved]
  - Overdose [Unknown]
